FAERS Safety Report 6486080-0 (Version None)
Quarter: 2009Q4

REPORT INFORMATION
  Report Type: 
  Country: None (occurrence: None)
  Receive Date: 20091207
  Receipt Date: 20091123
  Transmission Date: 20100525
  Serious: Yes (Hospitalization)
  Sender: FDA-Public Use
  Company Number: 2009AC000451

PATIENT
  Age: 79 Year
  Sex: Male

DRUGS (12)
  1. DIGOXIN [Suspect]
     Dosage: 0.25 MG;QD;PO
     Route: 048
  2. METOPROLOL TARTRATE [Concomitant]
  3. GLIPIZIDE [Concomitant]
  4. COZAAR [Concomitant]
  5. ZOCOR [Concomitant]
  6. HYDRALAZINE HCL [Concomitant]
  7. LOTREL [Concomitant]
  8. NIASPAN [Concomitant]
  9. PROTONIX [Concomitant]
  10. ASPIRIN [Concomitant]
  11. CALCITRIOL [Concomitant]
  12. LIDOCAINE [Concomitant]

REACTIONS (18)
  - ANAEMIA [None]
  - ANHEDONIA [None]
  - ANXIETY [None]
  - ATRIAL FIBRILLATION [None]
  - CARDIAC PACEMAKER INSERTION [None]
  - CARDIOMYOPATHY [None]
  - COLD SWEAT [None]
  - HEART RATE IRREGULAR [None]
  - INCORRECT DOSE ADMINISTERED [None]
  - MULTIPLE INJURIES [None]
  - NAUSEA [None]
  - PAIN [None]
  - PALPITATIONS [None]
  - RENAL FAILURE ACUTE [None]
  - THERAPEUTIC AGENT TOXICITY [None]
  - UNEVALUABLE EVENT [None]
  - VISUAL IMPAIRMENT [None]
  - VOMITING [None]
